FAERS Safety Report 12746793 (Version 1)
Quarter: 2016Q3

REPORT INFORMATION
  Report Type: Spontaneous
  Country: US (occurrence: US)
  Receive Date: 20160915
  Receipt Date: 20160915
  Transmission Date: 20161109
  Serious: No
  Sender: FDA-Public Use
  Company Number: US-ASTELLAS-2015US032156

PATIENT
  Age: 89 Year
  Sex: Male

DRUGS (2)
  1. XTANDI [Suspect]
     Active Substance: ENZALUTAMIDE
     Dosage: UNK UNK, UNKNOWN FREQ.
     Route: 065
  2. XTANDI [Suspect]
     Active Substance: ENZALUTAMIDE
     Indication: PROSTATE CANCER
     Route: 048
     Dates: start: 20130719, end: 20150903

REACTIONS (5)
  - Oesophageal disorder [Recovered/Resolved]
  - Dysphagia [Recovering/Resolving]
  - Dysphagia [Unknown]
  - Underdose [Unknown]
  - Odynophagia [Unknown]

NARRATIVE: CASE EVENT DATE: 20150719
